FAERS Safety Report 17802981 (Version 1)
Quarter: 2020Q2

REPORT INFORMATION
  Report Type: Spontaneous
  Country: US (occurrence: US)
  Receive Date: 20200519
  Receipt Date: 20200519
  Transmission Date: 20200714
  Serious: Yes (Hospitalization)
  Sender: FDA-Public Use
  Company Number: US-TEVA-2020-US-1236881

PATIENT
  Age: 71 Year
  Sex: Male

DRUGS (6)
  1. BASILIXIMAB [Suspect]
     Active Substance: BASILIXIMAB
     Indication: IMMUNOSUPPRESSANT DRUG THERAPY
     Dosage: 20MG ON DAY OF TRANSPLANT AND POSTOPERATIVE DAY 4 (INDUCTION)
     Route: 042
  2. TACROLIMUS. [Suspect]
     Active Substance: TACROLIMUS
     Indication: IMMUNOSUPPRESSANT DRUG THERAPY
     Dosage: TACROLIMUS 1 MG IN MORNING, 2 MG IN EVENING
     Route: 065
     Dates: start: 201409, end: 201703
  3. PREDNISONE. [Suspect]
     Active Substance: PREDNISONE
     Indication: IMMUNOSUPPRESSANT DRUG THERAPY
     Dosage: 5 MILLIGRAM DAILY;
     Route: 065
     Dates: start: 201409
  4. AZITHROMYCIN ANHYDROUS. [Suspect]
     Active Substance: AZITHROMYCIN ANHYDROUS
     Indication: RHODOCOCCUS INFECTION
     Dosage: 250 MILLIGRAM DAILY;
     Route: 048
  5. MYCOPHENOLATE [Suspect]
     Active Substance: MYCOPHENOLIC ACID
     Indication: IMMUNOSUPPRESSANT DRUG THERAPY
     Dosage: 1000 MILLIGRAM DAILY;
     Route: 065
     Dates: start: 201409
  6. MOXIFLOXACIN. [Suspect]
     Active Substance: MOXIFLOXACIN
     Indication: RHODOCOCCUS INFECTION
     Dosage: 400 MILLIGRAM DAILY;
     Route: 048

REACTIONS (5)
  - Rhodococcus infection [Recovered/Resolved]
  - Lung disorder [Recovered/Resolved]
  - Treatment failure [Unknown]
  - Malacoplakia [Recovered/Resolved]
  - Pneumonia [Recovered/Resolved]
